FAERS Safety Report 10051665 (Version 1)
Quarter: 2014Q1

REPORT INFORMATION
  Report Type: Spontaneous
  Country: US (occurrence: None)
  Receive Date: 20140331
  Receipt Date: 20140331
  Transmission Date: 20141002
  Serious: Yes (Hospitalization)
  Sender: FDA-Public Use
  Company Number: IMP_07537_2014

PATIENT
  Sex: 0

DRUGS (1)
  1. METFORMIN [Suspect]
     Indication: DIABETES MELLITUS
     Dosage: (DF)

REACTIONS (6)
  - Renal failure acute [None]
  - Dialysis [None]
  - Abdominal discomfort [None]
  - Nausea [None]
  - Vomiting [None]
  - Diarrhoea [None]
